FAERS Safety Report 10442116 (Version 1)
Quarter: 2014Q3

REPORT INFORMATION
  Report Type: Spontaneous
  Country: US (occurrence: None)
  Receive Date: 20140815
  Receipt Date: 20140815
  Transmission Date: 20150326
  Serious: No
  Sender: FDA-Public Use
  Company Number: A-US2014-97071

PATIENT
  Age: 81 Year
  Sex: Female

DRUGS (2)
  1. OPSUMIT [Suspect]
     Active Substance: MACITENTAN
     Indication: COR PULMONALE CHRONIC
     Route: 048
     Dates: start: 20140228
  2. RIOCIGUAT (RIOCIGUAT) [Suspect]
     Active Substance: RIOCIGUAT

REACTIONS (5)
  - Fluid retention [None]
  - Hypotension [None]
  - Weight increased [None]
  - Abdominal distension [None]
  - Dizziness [None]
